FAERS Safety Report 18320470 (Version 2)
Quarter: 2021Q1

REPORT INFORMATION
  Report Type: Spontaneous
  Country: DE (occurrence: DE)
  Receive Date: 20200928
  Receipt Date: 20210211
  Transmission Date: 20210419
  Serious: Yes (Other)
  Sender: FDA-Public Use
  Company Number: NVSC2020DE257384

PATIENT
  Age: 56 Year
  Sex: Male
  Weight: 110 kg

DRUGS (2)
  1. CIPROHEXAL 500 FILMCOATED TABLETS [Suspect]
     Active Substance: CIPROFLOXACIN HYDROCHLORIDE
     Indication: DIVERTICULITIS
     Dosage: 500 MG, Q12H ( 1?0?1)
     Route: 048
     Dates: start: 20200828, end: 20200904
  2. CIPROHEXAL 500 FILMCOATED TABLETS [Suspect]
     Active Substance: CIPROFLOXACIN HYDROCHLORIDE
     Dosage: 500 MG, Q12H (1?0?1)
     Route: 048
     Dates: start: 20200830, end: 20200905

REACTIONS (11)
  - Sleep disorder [Recovered/Resolved]
  - Visual impairment [Not Recovered/Not Resolved]
  - Somnolence [Not Recovered/Not Resolved]
  - Fatigue [Not Recovered/Not Resolved]
  - Impaired work ability [Unknown]
  - Nausea [Not Recovered/Not Resolved]
  - Dizziness [Not Recovered/Not Resolved]
  - Circulatory collapse [Recovered/Resolved]
  - Taste disorder [Not Recovered/Not Resolved]
  - Vertigo [Not Recovered/Not Resolved]
  - Gait disturbance [Recovered/Resolved]

NARRATIVE: CASE EVENT DATE: 20200830
